FAERS Safety Report 6154525-1 (Version None)
Quarter: 2009Q2

REPORT INFORMATION
  Report Type: 
  Country: None (occurrence: None)
  Receive Date: 20090410
  Receipt Date: 20090410
  Transmission Date: 20091009
  Serious: Yes (Death)
  Sender: FDA-Public Use
  Company Number: None

PATIENT
  Age: 83 Year
  Sex: Male

DRUGS (1)
  1. METHOTREXATE [Suspect]
     Indication: SARCOIDOSIS
     Dosage: 12.5 MG QWEEK PO
     Route: 048
     Dates: start: 20090205, end: 20090315

REACTIONS (7)
  - CARDIAC DISORDER [None]
  - DRUG TOXICITY [None]
  - MUCOSAL INFLAMMATION [None]
  - OESOPHAGEAL CANDIDIASIS [None]
  - RENAL FAILURE ACUTE [None]
  - RENAL IMPAIRMENT [None]
  - VASCULAR GRAFT OCCLUSION [None]
